FAERS Safety Report 25887020 (Version 1)
Quarter: 2025Q4

REPORT INFORMATION
  Report Type: Spontaneous
  Country: JP (occurrence: JP)
  Receive Date: 20251006
  Receipt Date: 20251006
  Transmission Date: 20260119
  Serious: Yes (Other)
  Sender: GLAXOSMITHKLINE
  Company Number: JP-GSK-JP2025JPN124965

PATIENT
  Sex: Male

DRUGS (1)
  1. FLOLAN [Suspect]
     Active Substance: EPOPROSTENOL SODIUM
     Indication: Heritable pulmonary arterial hypertension
     Dosage: UNK

REACTIONS (6)
  - Hyperthyroidism [Unknown]
  - Pulmonary hypertension [Unknown]
  - Graves^ disease [Unknown]
  - Thyroid disorder [Unknown]
  - Silent thyroiditis [Recovering/Resolving]
  - Thyroiditis [Unknown]
